FAERS Safety Report 6547567-5 (Version None)
Quarter: 2010Q1

REPORT INFORMATION
  Report Type: 
  Country: None (occurrence: None)
  Receive Date: 20100122
  Receipt Date: 20100114
  Transmission Date: 20100710
  Serious: Yes (Hospitalization, Other)
  Sender: FDA-Public Use
  Company Number: US-ABBOTT-09P-163-0612986-00

PATIENT
  Age: 59 Year
  Sex: Female
  Weight: 88.984 kg

DRUGS (12)
  1. HUMIRA [Suspect]
     Indication: RHEUMATOID ARTHRITIS
     Dates: start: 20060101, end: 20090601
  2. HUMIRA [Suspect]
     Dates: start: 20090901
  3. HUMIRA [Suspect]
     Dates: start: 20091101, end: 20091101
  4. PLAQUENIL [Concomitant]
     Indication: RHEUMATOID ARTHRITIS
  5. BENICAR HCT [Concomitant]
     Indication: HYPERTENSION
     Dosage: 40/25 MG
  6. DILTIAZEM [Concomitant]
     Indication: HYPERTENSION
  7. METOPROLOL TARTRATE [Concomitant]
     Indication: HYPERTENSION
  8. FEMHRT [Concomitant]
     Indication: HORMONE REPLACEMENT THERAPY
     Dosage: 1 MG/5 MCG
  9. LYRICA [Concomitant]
     Indication: NEURALGIA
  10. FLEXERIL [Concomitant]
     Indication: MUSCLE RELAXANT THERAPY
  11. AMBIEN [Concomitant]
     Indication: INSOMNIA
  12. FISH OIL [Concomitant]
     Indication: DRUG USE FOR UNKNOWN INDICATION

REACTIONS (6)
  - BLOOD CREATININE INCREASED [None]
  - COUGH [None]
  - KNEE ARTHROPLASTY [None]
  - OEDEMA PERIPHERAL [None]
  - PYREXIA [None]
  - WHEEZING [None]
